FAERS Safety Report 9975349 (Version 1)
Quarter: 2014Q1

REPORT INFORMATION
  Report Type: Report from Study
  Country: US (occurrence: US)
  Receive Date: 20140306
  Receipt Date: 20140306
  Transmission Date: 20141002
  Serious: No
  Sender: FDA-Public Use
  Company Number: US-ABBVIE-13P-163-1155561-00

PATIENT
  Age: 27 Year
  Sex: Male
  Weight: 70.37 kg

DRUGS (7)
  1. HUMIRA [Suspect]
     Indication: COLITIS ULCERATIVE
     Dates: start: 2013, end: 2013
  2. HUMIRA [Suspect]
     Dates: start: 2013, end: 2013
  3. HUMIRA [Suspect]
     Dates: start: 2013
  4. ASACOL [Concomitant]
     Indication: COLITIS ULCERATIVE
  5. XIFAXAN [Concomitant]
     Indication: COLITIS ULCERATIVE
  6. PREDNISONE [Concomitant]
     Indication: COLITIS ULCERATIVE
  7. IRON [Concomitant]
     Indication: MINERAL SUPPLEMENTATION

REACTIONS (5)
  - Fatigue [Not Recovered/Not Resolved]
  - Cough [Not Recovered/Not Resolved]
  - Nasopharyngitis [Not Recovered/Not Resolved]
  - Pyrexia [Not Recovered/Not Resolved]
  - Night sweats [Not Recovered/Not Resolved]
